FAERS Safety Report 8443235-3 (Version None)
Quarter: 2012Q2

REPORT INFORMATION
  Report Type: 
  Country: None (occurrence: None)
  Receive Date: 20120617
  Receipt Date: 20120606
  Transmission Date: 20120825
  Serious: Yes (Hospitalization)
  Sender: FDA-Public Use
  Company Number: JP-VERTEX PHARMACEUTICALS INC.-AE-2012-008659

PATIENT
  Age: 52 Year
  Sex: Male

DRUGS (3)
  1. RIBAVIRIN [Concomitant]
     Route: 048
     Dates: start: 20120604
  2. PEGINTERFERON ALFA-2B [Concomitant]
     Route: 058
     Dates: start: 20120604
  3. INCIVEK [Suspect]
     Route: 048
     Dates: start: 20120604, end: 20120606

REACTIONS (2)
  - RENAL IMPAIRMENT [None]
  - BLOOD URIC ACID INCREASED [None]
